FAERS Safety Report 5006831-1 (Version None)
Quarter: 2006Q2

REPORT INFORMATION
  Report Type: 
  Country: None (occurrence: None)
  Receive Date: 20060516
  Receipt Date: 20060503
  Transmission Date: 20061013
  Serious: Yes (Other)
  Sender: FDA-Public Use
  Company Number: T200600437

PATIENT
  Age: 54 Year
  Sex: Male
  Weight: 90 kg

DRUGS (5)
  1. OXYCODONE HYDROCHLORIDE(OXYCODONE HCL) TABLET [Suspect]
     Indication: HEADACHE
     Dosage: SEE IMAGE
     Route: 048
     Dates: start: 20030101
  2. TRAMADOL HCL [Concomitant]
  3. CARBAMAZEPINE (CARAMAZEPINE) [Concomitant]
  4. ALENDRONIC ACID (ALENDRONIC ACID) [Concomitant]
  5. HYDROCORTISONE [Concomitant]

REACTIONS (2)
  - GRAND MAL CONVULSION [None]
  - POSTICTAL STATE [None]
